FAERS Safety Report 13746443 (Version 6)
Quarter: 2018Q2

REPORT INFORMATION
  Report Type: Report from Study
  Country: US (occurrence: US)
  Receive Date: 20170712
  Receipt Date: 20180508
  Transmission Date: 20180711
  Serious: Yes (Death, Other)
  Sender: FDA-Public Use
  Company Number: US-BIOGEN-2017BI00430484

PATIENT
  Age: 35 Year
  Sex: Female

DRUGS (1)
  1. TYSABRI [Suspect]
     Active Substance: NATALIZUMAB
     Indication: MULTIPLE SCLEROSIS
     Route: 042
     Dates: start: 20110117, end: 20170508

REACTIONS (4)
  - Neoplasm malignant [Unknown]
  - Completed suicide [Fatal]
  - Overdose [Fatal]
  - Opportunistic infection [Unknown]

NARRATIVE: CASE EVENT DATE: 20170416
